FAERS Safety Report 6003245-2 (Version None)
Quarter: 2008Q4

REPORT INFORMATION
  Report Type: 
  Country: None (occurrence: None)
  Receive Date: 20081212
  Receipt Date: 20081212
  Transmission Date: 20090506
  Serious: No
  Sender: FDA-Public Use
  Company Number: None

PATIENT
  Sex: Female
  Weight: 60.782 kg

DRUGS (4)
  1. HUMIRA [Suspect]
     Indication: RHEUMATOID ARTHRITIS
     Dosage: 40MG QW TOP
     Dates: start: 20080204, end: 20081020
  2. PLAQUENIL [Concomitant]
  3. IBUPROFEN TABLETS [Concomitant]
  4. EFFEXOR [Concomitant]

REACTIONS (1)
  - ALOPECIA [None]
